FAERS Safety Report 6809534-3 (Version None)
Quarter: 2010Q2

REPORT INFORMATION
  Report Type: 
  Country: None (occurrence: None)
  Receive Date: 20100630
  Receipt Date: 20100616
  Transmission Date: 20101027
  Serious: Yes (Hospitalization)
  Sender: FDA-Public Use
  Company Number: DE-BRISTOL-MYERS SQUIBB COMPANY-15170947

PATIENT
  Age: 64 Year
  Sex: Male
  Weight: 59 kg

DRUGS (3)
  1. CETUXIMAB [Suspect]
     Indication: NON-SMALL CELL LUNG CANCER
     Dosage: 4TH DOSE ON 04JUN2010 ABS DOSE: 375
     Route: 065
     Dates: start: 20100520
  2. CARBOPLATIN [Suspect]
     Indication: NON-SMALL CELL LUNG CANCER
     Dosage: 1 DF= 5 AUC  ABSOLUTE DOSE: 325
     Route: 065
     Dates: start: 20100520
  3. GEMCITABINE HCL [Suspect]
     Indication: NON-SMALL CELL LUNG CANCER
     Dosage: 2ND DOSE ON 28MAY2010 ABS DOSE: 1767
     Route: 065
     Dates: start: 20100520

REACTIONS (1)
  - PYREXIA [None]
